FAERS Safety Report 26109403 (Version 5)
Quarter: 2025Q4

REPORT INFORMATION
  Report Type: Report from Study
  Country: CA (occurrence: CA)
  Receive Date: 20251201
  Receipt Date: 20251218
  Transmission Date: 20260118
  Serious: Yes (Other)
  Sender: HLS THERAPEUTICS
  Company Number: CA-HLS-202503143

PATIENT
  Age: 45 Year
  Sex: Male

DRUGS (9)
  1. CLOZARIL [Suspect]
     Active Substance: CLOZAPINE
     Indication: Product used for unknown indication
     Dosage: PATIENT STARTED ON CLOZAPINE 09-OCT-2025 ON 12.5 MG QHS INCREASING 12.5 MG Q2D (EVERY 2 DAYS) UP TO
     Route: 048
     Dates: start: 20251008
  2. CLOZARIL [Suspect]
     Active Substance: CLOZAPINE
     Indication: Product used for unknown indication
     Dosage: Q2D
     Route: 065
  3. CLOZARIL [Suspect]
     Active Substance: CLOZAPINE
     Indication: Product used for unknown indication
     Dosage: CLOZARIL DOSE WAS 150 MG WITH ADDITIONAL TITRATION ORDERED
     Route: 048
     Dates: start: 20251031
  4. CLOZARIL [Suspect]
     Active Substance: CLOZAPINE
     Indication: Product used for unknown indication
     Route: 065
     Dates: start: 20251117
  5. CLOZARIL [Suspect]
     Active Substance: CLOZAPINE
     Indication: Product used for unknown indication
     Route: 065
     Dates: start: 20251122
  6. ISONIAZID [Concomitant]
     Active Substance: ISONIAZID
     Indication: Latent tuberculosis
     Dosage: 300 MG PO BID
     Route: 048
     Dates: start: 20251107, end: 202512
  7. RIFAMPIN [Concomitant]
     Active Substance: RIFAMPIN
     Indication: Latent tuberculosis
     Route: 065
  8. RIFAMPIN [Concomitant]
     Active Substance: RIFAMPIN
     Indication: Latent tuberculosis
     Dosage: 4 MONTH TREATMENT
     Route: 065
  9. AMOXICILLIN [Concomitant]
     Active Substance: AMOXICILLIN
     Indication: Product used for unknown indication
     Dosage: 1 GRAM ORALLY THREE TIMES A DAY (TID) FOR 5 DAYS
     Route: 048

REACTIONS (11)
  - Brain natriuretic peptide increased [Unknown]
  - Nasopharyngitis [Unknown]
  - Influenza [Unknown]
  - Labelled drug-drug interaction issue [Unknown]
  - Nausea [Unknown]
  - Orthostatic hypotension [Unknown]
  - Platelet count increased [Unknown]
  - Pharyngitis streptococcal [Unknown]
  - Lung consolidation [Recovering/Resolving]
  - C-reactive protein increased [Recovering/Resolving]
  - Therapy interrupted [Unknown]

NARRATIVE: CASE EVENT DATE: 20251008
